FAERS Safety Report 24123128 (Version 1)
Quarter: 2024Q3

REPORT INFORMATION
  Report Type: Spontaneous
  Country: US (occurrence: US)
  Receive Date: 20240723
  Receipt Date: 20240723
  Transmission Date: 20241017
  Serious: No
  Sender: OTSUKA
  Company Number: US-OTSUKA-2023_018989

PATIENT
  Sex: Female

DRUGS (2)
  1. REXULTI [Suspect]
     Active Substance: BREXPIPRAZOLE
     Indication: Major depression
     Dosage: 5 MG, QOD (4MG DAILY AND 1MG EVERY OTHER DAY)
     Route: 065
  2. REXULTI [Suspect]
     Active Substance: BREXPIPRAZOLE
     Indication: Bipolar I disorder
     Dosage: 4 MG, QOD (4MG EVERY DAY AND 1MG EVERY OTHER DAY)
     Route: 065

REACTIONS (4)
  - Mania [Unknown]
  - Overdose [Unknown]
  - Drug effective for unapproved indication [Unknown]
  - Incorrect dose administered [Unknown]
